FAERS Safety Report 6465885-6 (Version None)
Quarter: 2009Q4

REPORT INFORMATION
  Report Type: 
  Country: None (occurrence: None)
  Receive Date: 20091127
  Receipt Date: 20091115
  Transmission Date: 20100525
  Serious: Yes (Death, Hospitalization)
  Sender: FDA-Public Use
  Company Number: A-US2004-06262

PATIENT
  Age: 54 Year
  Sex: Female

DRUGS (1)
  1. TRACLEER [Suspect]
     Indication: PULMONARY ARTERIAL HYPERTENSION
     Dosage: ORAL
     Route: 048
     Dates: start: 20050825

REACTIONS (6)
  - ABDOMINAL DISTENSION [None]
  - DYSPNOEA [None]
  - HEPATIC CIRRHOSIS [None]
  - LIVER SCAN ABNORMAL [None]
  - PIGMENTATION DISORDER [None]
  - PRURITUS [None]
